FAERS Safety Report 18117044 (Version 1)
Quarter: 2020Q3

REPORT INFORMATION
  Report Type: Spontaneous
  Country: ES (occurrence: ES)
  Receive Date: 20200806
  Receipt Date: 20200806
  Transmission Date: 20201103
  Serious: Yes (Hospitalization)
  Sender: FDA-Public Use
  Company Number: ES-ALKEM LABORATORIES LIMITED-ES-ALKEM-2020-04267

PATIENT
  Age: 3 Year
  Sex: Female

DRUGS (2)
  1. CEFTRIAXONE. [Suspect]
     Active Substance: CEFTRIAXONE
     Indication: BORRELIA INFECTION
     Dosage: UNK
     Route: 030
  2. LIDOCAINE. [Suspect]
     Active Substance: LIDOCAINE
     Indication: BORRELIA INFECTION
     Dosage: UNK
     Route: 030

REACTIONS (6)
  - Condition aggravated [Unknown]
  - Toxicity to various agents [Unknown]
  - Partial seizures with secondary generalisation [Unknown]
  - Hypertonia [Unknown]
  - Mitochondrial DNA mutation [Unknown]
  - Myoclonus [Unknown]
